FAERS Safety Report 23314439 (Version 2)
Quarter: 2024Q1

REPORT INFORMATION
  Report Type: Spontaneous
  Country: US (occurrence: US)
  Receive Date: 20231219
  Receipt Date: 20240110
  Transmission Date: 20240409
  Serious: Yes (Hospitalization, Other)
  Sender: FDA-Public Use
  Company Number: US-SA-SAC20231215001098

PATIENT
  Age: 29 Year
  Sex: Female

DRUGS (1)
  1. KEVZARA [Suspect]
     Active Substance: SARILUMAB
     Indication: Rheumatoid arthritis
     Dosage: 200 MG, QOW
     Route: 058
     Dates: start: 202308

REACTIONS (3)
  - Pericarditis [Recovering/Resolving]
  - Dyspnoea [Recovering/Resolving]
  - Pleuritic pain [Recovering/Resolving]

NARRATIVE: CASE EVENT DATE: 20231124
